FAERS Safety Report 24760092 (Version 1)
Quarter: 2024Q4

REPORT INFORMATION
  Report Type: Spontaneous
  Country: US (occurrence: US)
  Receive Date: 20241220
  Receipt Date: 20241220
  Transmission Date: 20250115
  Serious: Yes (Disabling)
  Sender: FRESENIUS KABI
  Company Number: US-FreseniusKabi-FK202418791

PATIENT
  Age: 76 Year
  Sex: Female
  Weight: 54.43 kg

DRUGS (3)
  1. XYLOCAINE [Suspect]
     Active Substance: LIDOCAINE HYDROCHLORIDE
     Indication: Prophylaxis
     Dosage: FORM OF ADMINISTRATION: INJECTION?ROUTE OF ADMINISTRATION: INTRAVENOUS ?DOSAGE: 60 MG ?FREQUENCY: ON
     Route: 042
     Dates: start: 20241001, end: 20241001
  2. XYLOCAINE [Suspect]
     Active Substance: LIDOCAINE HYDROCHLORIDE
     Indication: Choking
  3. PROPOFOL [Suspect]
     Active Substance: PROPOFOL
     Indication: Sedation
     Dosage: ROUTE OF ADMINISTRATION: INTRAVENOUS?DOSAGE: 180 MG ?FREQUENCY: ONCE
     Route: 042
     Dates: start: 20241001, end: 20241001

REACTIONS (4)
  - Gait disturbance [Not Recovered/Not Resolved]
  - Back pain [Not Recovered/Not Resolved]
  - Asthenia [Not Recovered/Not Resolved]
  - Off label use [Unknown]

NARRATIVE: CASE EVENT DATE: 20241001
